FAERS Safety Report 6039493-5 (Version None)
Quarter: 2009Q1

REPORT INFORMATION
  Report Type: 
  Country: None (occurrence: None)
  Receive Date: 20090114
  Receipt Date: 20090107
  Transmission Date: 20090719
  Serious: Yes (Death)
  Sender: FDA-Public Use
  Company Number: CAR-2009-001

PATIENT
  Sex: Female

DRUGS (1)
  1. CARAFATE [Suspect]

REACTIONS (1)
  - DEATH [None]
